FAERS Safety Report 10904195 (Version 2)
Quarter: 2015Q2

REPORT INFORMATION
  Report Type: Spontaneous
  Country: IT (occurrence: IT)
  Receive Date: 20150311
  Receipt Date: 20150403
  Transmission Date: 20150821
  Serious: Yes (Hospitalization)
  Sender: FDA-Public Use
  Company Number: IT-PFIZER INC-2015087485

PATIENT
  Age: 83 Year
  Sex: Male

DRUGS (9)
  1. TORVAST [Concomitant]
     Active Substance: ATORVASTATIN
     Dosage: UNK
  2. PANTORC [Concomitant]
     Active Substance: PANTOPRAZOLE SODIUM
     Dosage: UNK
  3. LASIX [Concomitant]
     Active Substance: FUROSEMIDE
     Dosage: UNK
  4. GLIBOMET [Interacting]
     Active Substance: GLYBURIDE\METFORMIN HYDROCHLORIDE
     Indication: TYPE 2 DIABETES MELLITUS
     Dosage: 600 MG, DAILY
     Route: 048
  5. COUMADIN [Interacting]
     Active Substance: WARFARIN SODIUM
     Indication: THROMBOSIS PROPHYLAXIS
     Dosage: 1 DF, DAILY
     Route: 048
  6. CARDIOASPIRIN [Concomitant]
     Active Substance: ASPIRIN
     Dosage: UNK
  7. RAMIPRIL ACTAVIS [Concomitant]
     Active Substance: RAMIPRIL
     Dosage: UNK
  8. AMIODAR [Suspect]
     Active Substance: AMIODARONE
     Indication: ANGINA PECTORIS
     Dosage: 200 MG, DAILY
     Route: 048
  9. METOPROLOL TARTATE [Concomitant]
     Active Substance: METOPROLOL TARTRATE
     Dosage: UNK

REACTIONS (4)
  - International normalised ratio increased [Unknown]
  - Drug interaction [Unknown]
  - Hypoglycaemia [Unknown]
  - Language disorder [Unknown]

NARRATIVE: CASE EVENT DATE: 20150301
